FAERS Safety Report 5265115-7 (Version None)
Quarter: 2007Q1

REPORT INFORMATION
  Report Type: 
  Country: None (occurrence: None)
  Receive Date: 20070314
  Receipt Date: 20070305
  Transmission Date: 20070707
  Serious: Yes (Other)
  Sender: FDA-Public Use
  Company Number: US-JNJFOC-20070301665

PATIENT
  Sex: Female
  Weight: 90.72 kg

DRUGS (7)
  1. DURAGESIC-100 [Suspect]
     Indication: PAIN
     Route: 062
  2. NEURONTIN [Concomitant]
     Indication: PAIN
     Route: 048
  3. SKELAXIN [Concomitant]
     Indication: MYALGIA
     Route: 048
  4. XANAX [Concomitant]
     Indication: FIBROMYALGIA
     Route: 048
  5. RESTORIL [Concomitant]
     Indication: SLEEP DISORDER
     Route: 048
  6. REMERON [Concomitant]
     Indication: SLEEP DISORDER
     Route: 048
  7. AVALIDE [Concomitant]
     Indication: BLOOD PRESSURE
     Route: 048

REACTIONS (3)
  - BLOOD PRESSURE INCREASED [None]
  - DRUG INEFFECTIVE [None]
  - INSOMNIA [None]
